FAERS Safety Report 6907297-4 (Version None)
Quarter: 2010Q3

REPORT INFORMATION
  Report Type: 
  Country: None (occurrence: None)
  Receive Date: 20100730
  Receipt Date: 20100721
  Transmission Date: 20110219
  Serious: Yes (Death, Hospitalization)
  Sender: FDA-Public Use
  Company Number: 2010AC000481

PATIENT
  Age: 86 Year
  Sex: Female

DRUGS (64)
  1. DIGOXIN [Suspect]
     Dosage: PO
     Route: 048
     Dates: start: 20080328, end: 20080421
  2. DIGOXIN [Suspect]
     Indication: ATRIAL FIBRILLATION
     Dosage: 0.125 MG;QOD; PO
     Route: 048
     Dates: start: 20080322, end: 20080326
  3. ASPIRIN [Concomitant]
  4. PLAVIX [Concomitant]
  5. ARANESP [Concomitant]
  6. PREVACID [Concomitant]
  7. ZYVOX [Concomitant]
  8. DIFLUCAN [Concomitant]
  9. FOLTX [Concomitant]
  10. DENAVIR [Concomitant]
  11. HYDROCHLOROTHIAZIDE [Concomitant]
  12. DESONIDE [Concomitant]
  13. CLONIDINE [Concomitant]
  14. PAROXETINE HCL [Concomitant]
  15. VERAPAMIL [Concomitant]
  16. LORAZEPAM [Concomitant]
  17. PRAVACHOL [Concomitant]
  18. PYRIDOXINE HCL [Concomitant]
  19. LEVOBUNOLOL HCL [Concomitant]
  20. ACTONEL [Concomitant]
  21. LIPITOR [Concomitant]
  22. CIPROFLOXACIN [Concomitant]
  23. ALTACE [Concomitant]
  24. MIRAPEX [Concomitant]
  25. NEXIUM [Concomitant]
  26. METOPROLOL [Concomitant]
  27. OXYCODONE HCL [Concomitant]
  28. PROPOXY/APAP [Concomitant]
  29. SKELAXIN [Concomitant]
  30. DOXYCYCLINE HYCLATE [Concomitant]
  31. ACETAMINOPHEN [Concomitant]
  32. LEVOBUNOLOL HCL [Concomitant]
  33. BELPHAMIDE [Concomitant]
  34. FOLBIC [Concomitant]
  35. AMIDARONE [Concomitant]
  36. LEVOTHYROXINE [Concomitant]
  37. AMBINE [Concomitant]
  38. FERREX [Concomitant]
  39. ZOLOFT [Concomitant]
  40. FURSOEMIDE [Concomitant]
  41. BENICAR [Concomitant]
  42. KLOR-CON [Concomitant]
  43. WARFARIN SODIUM [Concomitant]
  44. CALCITRIOL [Concomitant]
  45. PRAVASTATIN [Concomitant]
  46. NIFEREX [Concomitant]
  47. ZYRTEC [Concomitant]
  48. SONATA [Concomitant]
  49. FORTICAL [Concomitant]
  50. SERTRALINE HYDROCHLORIDE [Concomitant]
  51. TORSEMIDE [Concomitant]
  52. HYSOCYAMINE [Concomitant]
  53. SPIRONOLACTONE [Concomitant]
  54. NEPHRO VITE [Concomitant]
  55. HYDRALAZINE HCL [Concomitant]
  56. COMBIVENT [Concomitant]
  57. ISOSORBIDE [Concomitant]
  58. AZITHROMYCIN [Concomitant]
  59. RENAGEL [Concomitant]
  60. DEMADEX [Concomitant]
  61. ACETAMINOPHEN [Concomitant]
  62. LEVSIN [Concomitant]
  63. CALCIUM [Concomitant]
  64. IMDUR [Concomitant]

REACTIONS (34)
  - ASTHENIA [None]
  - ATRIOVENTRICULAR BLOCK SECOND DEGREE [None]
  - BRADYCARDIA [None]
  - CANDIDURIA [None]
  - CARDIAC ASTHMA [None]
  - CARDIAC FAILURE CONGESTIVE [None]
  - CARDIOACTIVE DRUG LEVEL BELOW THERAPEUTIC [None]
  - CARDIOMYOPATHY [None]
  - CELLULITIS [None]
  - CONDITION AGGRAVATED [None]
  - CONFUSIONAL STATE [None]
  - DECUBITUS ULCER [None]
  - DEHYDRATION [None]
  - DEMENTIA [None]
  - DEVICE RELATED SEPSIS [None]
  - DIARRHOEA [None]
  - DYSPHAGIA [None]
  - ECONOMIC PROBLEM [None]
  - ENTEROCOCCAL INFECTION [None]
  - HAEMORRHAGE [None]
  - HYPOTENSION [None]
  - MOANING [None]
  - MULTIPLE INJURIES [None]
  - PLEURAL EFFUSION [None]
  - PNEUMONIA [None]
  - PULMONARY OEDEMA [None]
  - RASH [None]
  - REFUSAL OF TREATMENT BY PATIENT [None]
  - RENAL FAILURE CHRONIC [None]
  - STAPHYLOCOCCAL BACTERAEMIA [None]
  - SURGERY [None]
  - URINARY TRACT INFECTION ENTEROCOCCAL [None]
  - VENTRICULAR TACHYCARDIA [None]
  - VOMITING [None]
